FAERS Safety Report 8598258-0 (Version None)
Quarter: 2012Q3

REPORT INFORMATION
  Report Type: 
  Country: None (occurrence: None)
  Receive Date: 20120806
  Receipt Date: 20120806
  Transmission Date: 20120928
  Serious: No
  Sender: FDA-Public Use
  Company Number: None

PATIENT
  Age: 67 Year
  Sex: Female
  Weight: 63.5036 kg

DRUGS (1)
  1. LIVALO [Suspect]
     Indication: LOW DENSITY LIPOPROTEIN INCREASED
     Dosage: 2MG 1 @ DINNER
     Dates: start: 20120716, end: 20120730

REACTIONS (4)
  - NERVOUS SYSTEM DISORDER [None]
  - MUSCLE SPASMS [None]
  - MUSCLE TIGHTNESS [None]
  - HEADACHE [None]
